FAERS Safety Report 6861906-7 (Version None)
Quarter: 2010Q3

REPORT INFORMATION
  Report Type: 
  Country: None (occurrence: None)
  Receive Date: 20100721
  Receipt Date: 20100706
  Transmission Date: 20110219
  Serious: Yes (Hospitalization, Other)
  Sender: FDA-Public Use
  Company Number: GB-SHIRE-SPV1-2010-01164

PATIENT

DRUGS (5)
  1. VPRIV [Suspect]
     Indication: GAUCHER'S DISEASE
     Dosage: 1200U EVERY TWO WEEKS
     Route: 041
     Dates: start: 20091211, end: 20100610
  2. ERYTHROMYCIN [Concomitant]
     Indication: PROPHYLAXIS
     Dosage: 250 MG, 2X/DAY:BID
     Route: 048
     Dates: start: 20010901
  3. ZOLEDRONIC ACID [Concomitant]
     Indication: OSTEOPOROSIS
     Dosage: 4 MG, MONTHLY
     Route: 042
     Dates: start: 20041201
  4. LANSOPRAZOLE [Concomitant]
     Indication: GASTROOESOPHAGEAL REFLUX DISEASE
     Dosage: 30 MG, 1X/DAY:QD
     Dates: start: 20090101
  5. VITAMIN D [Concomitant]
     Dosage: 800 DF, UNK
     Dates: start: 20080701

REACTIONS (1)
  - PNEUMONIA [None]
